FAERS Safety Report 23803243 (Version 5)
Quarter: 2025Q1

REPORT INFORMATION
  Report Type: Spontaneous
  Country: US (occurrence: US)
  Receive Date: 20240501
  Receipt Date: 20250228
  Transmission Date: 20250408
  Serious: Yes (Other)
  Sender: PFIZER
  Company Number: US-PFIZER INC-PV202400055519

PATIENT
  Age: 78 Year
  Sex: Female
  Weight: 91.338 kg

DRUGS (3)
  1. IBRANCE [Suspect]
     Active Substance: PALBOCICLIB
     Indication: Breast cancer metastatic
     Route: 048
     Dates: start: 201612
  2. IBRANCE [Suspect]
     Active Substance: PALBOCICLIB
     Indication: Breast cancer metastatic
     Route: 048
     Dates: start: 201612
  3. LETROZOLE [Concomitant]
     Active Substance: LETROZOLE
     Indication: Breast cancer metastatic
     Dates: start: 201612

REACTIONS (7)
  - Upper limb fracture [Unknown]
  - Shoulder fracture [Unknown]
  - Shoulder arthroplasty [Unknown]
  - Neutropenia [Recovered/Resolved]
  - Nausea [Unknown]
  - Alopecia [Unknown]
  - Fall [Unknown]

NARRATIVE: CASE EVENT DATE: 20240401
